FAERS Safety Report 15948489 (Version 1)
Quarter: 2019Q1

REPORT INFORMATION
  Report Type: Spontaneous
  Country: CN (occurrence: CN)
  Receive Date: 20190212
  Receipt Date: 20190212
  Transmission Date: 20190417
  Serious: Yes (Death, Other)
  Sender: FDA-Public Use
  Company Number: IND-CN-009507513-1902CHN000596

PATIENT
  Age: 72 Year
  Sex: Male

DRUGS (3)
  1. ESMERON  (IN ROMAN AND CHINESE) [Suspect]
     Active Substance: ROCURONIUM BROMIDE
     Indication: ANAESTHESIA PROCEDURE
     Dosage: 50 MILLIGRAM ST
     Dates: start: 20181227, end: 20181227
  2. ESMERON  (IN ROMAN AND CHINESE) [Suspect]
     Active Substance: ROCURONIUM BROMIDE
     Dosage: 50 MILLIGRAM ST
     Dates: start: 20181228, end: 20181228
  3. ESMERON  (IN ROMAN AND CHINESE) [Suspect]
     Active Substance: ROCURONIUM BROMIDE
     Dosage: 50 MILLIGRAM ST
     Dates: start: 20190103, end: 20190103

REACTIONS (1)
  - Cerebral haemorrhage [Fatal]

NARRATIVE: CASE EVENT DATE: 20190115
